FAERS Safety Report 8965562 (Version 1)
Quarter: 2012Q4

REPORT INFORMATION
  Report Type: Spontaneous
  Country: CA (occurrence: None)
  Receive Date: 20121205
  Receipt Date: 20121205
  Transmission Date: 20130627
  Serious: Yes (Other)
  Sender: FDA-Public Use
  Company Number: 2012-21005

PATIENT
  Age: 74 Year
  Sex: Female

DRUGS (3)
  1. AMANTADINE [Suspect]
     Indication: PARKINSON^S DISEASE
  2. LEVODOPA (LEVODOPA) [Concomitant]
  3. ROPINIROLE (ROPINIROLE) [Concomitant]

REACTIONS (2)
  - Livedo reticularis [None]
  - Hallucination, visual [None]
